FAERS Safety Report 19100326 (Version 2)
Quarter: 2021Q2

REPORT INFORMATION
  Report Type: Report from Study
  Country: CA (occurrence: CA)
  Receive Date: 20210407
  Receipt Date: 20210504
  Transmission Date: 20210717
  Serious: Yes (Other)
  Sender: FDA-Public Use
  Company Number: CA-JNJFOC-20210247417

PATIENT
  Age: 44 Year
  Sex: Male
  Weight: 85 kg

DRUGS (2)
  1. REMICADE [Suspect]
     Active Substance: INFLIXIMAB
     Route: 042
     Dates: start: 20210429
  2. REMICADE [Suspect]
     Active Substance: INFLIXIMAB
     Indication: CROHN^S DISEASE
     Dosage: 10 MG/KG
     Route: 042
     Dates: start: 20190509

REACTIONS (13)
  - Wound [Recovering/Resolving]
  - Fall [Unknown]
  - Diarrhoea [Recovering/Resolving]
  - Dizziness [Unknown]
  - Fatigue [Unknown]
  - Pyrexia [Unknown]
  - Rectal haemorrhage [Unknown]
  - Arthralgia [Recovering/Resolving]
  - Dehydration [Unknown]
  - Pain in extremity [Recovering/Resolving]
  - Clostridium difficile infection [Unknown]
  - Urine output decreased [Unknown]
  - Abdominal pain [Recovering/Resolving]

NARRATIVE: CASE EVENT DATE: 202102
